FAERS Safety Report 5897841-0 (Version None)
Quarter: 2008Q3

REPORT INFORMATION
  Report Type: 
  Country: None (occurrence: None)
  Receive Date: 20080923
  Receipt Date: 20080908
  Transmission Date: 20090109
  Serious: Yes (Other)
  Sender: FDA-Public Use
  Company Number: GB-1167273

PATIENT
  Age: 69 Year
  Sex: Female

DRUGS (2)
  1. BETAXOLOL HCL [Suspect]
     Dosage: OPHTHALMIC
     Route: 047
  2. DORZOLAMIDE (DORZOLAMIDE) [Concomitant]

REACTIONS (2)
  - INTRAOCULAR PRESSURE INCREASED [None]
  - PARACENTESIS EYE ABNORMAL [None]
